FAERS Safety Report 10638501 (Version 2)
Quarter: 2015Q1

REPORT INFORMATION
  Report Type: Spontaneous
  Country: US (occurrence: None)
  Receive Date: 20141204
  Receipt Date: 20150202
  Transmission Date: 20150720
  Serious: Yes (Hospitalization)
  Sender: FDA-Public Use
  Company Number: 2014-US-015587

PATIENT
  Age: 42 Year
  Sex: Female
  Weight: 55.8 kg

DRUGS (2)
  1. XYREM [Suspect]
     Active Substance: SODIUM OXYBATE
     Indication: SOMNOLENCE
     Route: 048
     Dates: start: 201302
  2. XYREM [Suspect]
     Active Substance: SODIUM OXYBATE
     Indication: NARCOLEPSY
     Route: 048
     Dates: start: 201302

REACTIONS (4)
  - Drug hypersensitivity [None]
  - Hepatic enzyme increased [None]
  - Cholelithiasis [None]
  - Abdominal pain [None]

NARRATIVE: CASE EVENT DATE: 201410
